FAERS Safety Report 22023850 (Version 1)
Quarter: 2023Q1

REPORT INFORMATION
  Report Type: Spontaneous
  Country: US (occurrence: None)
  Receive Date: 20230223
  Receipt Date: 20230223
  Transmission Date: 20230417
  Serious: No
  Sender: FDA-Public Use
  Company Number: US-ROCHE-3023200

PATIENT
  Sex: Male
  Weight: 136.20 kg

DRUGS (4)
  1. XOLAIR [Suspect]
     Active Substance: OMALIZUMAB
     Indication: Chronic spontaneous urticaria
     Dosage: TAKES TWO 150MG, EVERY 4 WEEKS
     Route: 058
     Dates: start: 2014
  2. XOLAIR [Suspect]
     Active Substance: OMALIZUMAB
     Dosage: TAKES TWO 150MG, EVERY 4 WEEKS
     Route: 058
     Dates: start: 20220112
  3. CELLCEPT [Suspect]
     Active Substance: MYCOPHENOLATE MOFETIL
     Indication: Chronic spontaneous urticaria
     Route: 065
  4. CHOLECALCIFEROL [Concomitant]
     Active Substance: CHOLECALCIFEROL

REACTIONS (11)
  - Pruritus [Unknown]
  - Osteopenia [Not Recovered/Not Resolved]
  - Off label use [Unknown]
  - Headache [Unknown]
  - Malaise [Unknown]
  - Myalgia [Recovered/Resolved]
  - Rhinorrhoea [Not Recovered/Not Resolved]
  - Nasal congestion [Recovered/Resolved]
  - Irritability [Recovered/Resolved]
  - Insomnia [Unknown]
  - Vision blurred [Not Recovered/Not Resolved]
